FAERS Safety Report 15580700 (Version 1)
Quarter: 2018Q4

REPORT INFORMATION
  Report Type: Spontaneous
  Country: US (occurrence: US)
  Receive Date: 20181102
  Receipt Date: 20181102
  Transmission Date: 20190205
  Serious: Yes (Life-Threatening, Other)
  Sender: FDA-Public Use
  Company Number: None

PATIENT
  Age: 21 Year
  Sex: Female
  Weight: 81 kg

DRUGS (1)
  1. AZITHROMYCIN 250 MG [Suspect]
     Active Substance: AZITHROMYCIN ANHYDROUS
     Indication: PNEUMONIA
     Dosage: ?          QUANTITY:6 TABLET(S);?
     Route: 048
     Dates: start: 20181028, end: 20181029

REACTIONS (8)
  - Nausea [None]
  - Disorientation [None]
  - Pruritus [None]
  - Dyspnoea [None]
  - Tachycardia [None]
  - Urticaria [None]
  - Wheezing [None]
  - Dizziness [None]

NARRATIVE: CASE EVENT DATE: 20181029
